FAERS Safety Report 8708543 (Version 2)
Quarter: 2012Q4

REPORT INFORMATION
  Report Type: Report from Study
  Country: FR (occurrence: FR)
  Receive Date: 20120806
  Receipt Date: 20121008
  Transmission Date: 20130627
  Serious: Yes (Other)
  Sender: FDA-Public Use
  Company Number: FR-ELI_LILLY_AND_COMPANY-FR201207007981

PATIENT
  Age: 61 Year
  Sex: Male
  Weight: 98 kg

DRUGS (10)
  1. INSULIN [Suspect]
     Indication: DIABETES MELLITUS
     Dosage: 30 IU, qd
     Route: 058
     Dates: start: 20120515
  2. LISPRO [Suspect]
     Indication: DIABETES MELLITUS
     Dosage: 30 IU, as needed
     Route: 058
     Dates: start: 20120515
  3. NICARDIPINE [Concomitant]
     Indication: HYPERTENSION
     Dosage: UNK
     Dates: start: 1997
  4. FUROSEMIDE [Concomitant]
     Indication: HYPERTENSION
     Dosage: UNK
     Dates: start: 1999
  5. LOSARTAN [Concomitant]
     Indication: HYPERTENSION
     Dosage: UNK
     Dates: start: 1997
  6. VENLAFAXINE [Concomitant]
     Indication: HYPERTENSION
     Dosage: UNK
     Dates: start: 2003
  7. ERYTHROMYCINE                      /00020901/ [Concomitant]
     Dosage: UNK
     Dates: start: 2000
  8. ACETYLSALICYLATE LYSINE [Concomitant]
     Indication: CARDIOVASCULAR DISORDER
     Dosage: UNK
     Dates: start: 2008
  9. EZETIMIBE [Concomitant]
     Indication: DYSLIPIDAEMIA
     Dosage: UNK
     Dates: start: 2009
  10. ATORVASTATIN [Concomitant]
     Indication: DYSLIPIDAEMIA
     Dosage: UNK
     Dates: start: 2005

REACTIONS (1)
  - Hypoglycaemic coma [Recovered/Resolved]
